FAERS Safety Report 8213248-5 (Version None)
Quarter: 2012Q1

REPORT INFORMATION
  Report Type: 
  Country: None (occurrence: None)
  Receive Date: 20120315
  Receipt Date: 20120308
  Transmission Date: 20120608
  Serious: Yes (Other)
  Sender: FDA-Public Use
  Company Number: DE-BAXTER-2012BH007061

PATIENT
  Sex: Male

DRUGS (1)
  1. ARTISS [Suspect]
     Indication: SKIN GRAFT
     Route: 065

REACTIONS (1)
  - WOUND INFECTION [None]
